FAERS Safety Report 7730895-5 (Version None)
Quarter: 2011Q3

REPORT INFORMATION
  Report Type: 
  Country: None (occurrence: None)
  Receive Date: 20110906
  Receipt Date: 20110826
  Transmission Date: 20111222
  Serious: Yes (Death, Hospitalization, Other)
  Sender: FDA-Public Use
  Company Number: US-BAYER-200934474NA

PATIENT
  Age: 70 Year
  Sex: Male
  Weight: 137 kg

DRUGS (21)
  1. FENTANYL-100 [Concomitant]
     Dosage: 1000 MG, UNK
     Route: 042
     Dates: start: 20030701, end: 20030701
  2. SODIUM BICARBONATE [Concomitant]
     Dosage: 25 MG, UNK
     Route: 042
     Dates: start: 20030701, end: 20030701
  3. CALCIUM CHLORIDE [Concomitant]
     Dosage: 1 G, UNK
     Route: 042
     Dates: start: 20030701, end: 20030701
  4. TRASYLOL [Suspect]
     Indication: CORONARY ARTERY BYPASS
     Dosage: 1 ML, TEST DOSE
     Route: 042
     Dates: start: 20030701, end: 20030701
  5. VERSED [Concomitant]
     Dosage: 14 MG, UNK
     Route: 042
     Dates: start: 20030701, end: 20030701
  6. CLINDAMYCIN [Concomitant]
     Dosage: 900 MG, UNK
     Route: 042
     Dates: start: 20030701, end: 20030701
  7. INSULIN [Concomitant]
     Dosage: 3 U, UNK
     Route: 042
     Dates: start: 20030701, end: 20030701
  8. PLATELETS [Concomitant]
     Dosage: 1 U, UNK
     Route: 042
     Dates: start: 20030701
  9. NITROGLYCERIN [Concomitant]
     Dosage: UNK
     Route: 042
     Dates: start: 20030701
  10. HEPARIN [Concomitant]
     Dosage: 5000 U, UNK
     Route: 042
     Dates: start: 20030701, end: 20030701
  11. MANNITOL [Concomitant]
     Dosage: 25 G, UNK
     Route: 042
     Dates: start: 20030701, end: 20030701
  12. NORVASC [Concomitant]
     Dosage: 10 MG, QD
     Route: 048
  13. ULTRAM [Concomitant]
     Dosage: UNK UNK, PRN
     Route: 048
  14. FRESH FROZEN PLASMA [Concomitant]
     Dosage: 2 U, UNK
     Route: 042
     Dates: start: 20030701
  15. TRASYLOL [Suspect]
     Dosage: 100 ML, UNK
     Route: 042
     Dates: start: 20030701, end: 20030701
  16. ATENOLOL [Concomitant]
     Dosage: 50 MG, QD
     Route: 048
  17. PHENYLEPHRINE HCL [Concomitant]
     Dosage: 1.4 MG, UNK
     Route: 042
     Dates: start: 20030701, end: 20030701
  18. PROTAMINE [Concomitant]
     Dosage: 50 MG, UNK
     Route: 042
     Dates: start: 20030701, end: 20030701
  19. RED BLOOD CELLS [Concomitant]
     Dosage: 3 U, UNK
     Route: 042
     Dates: start: 20030701, end: 20030701
  20. PAVULON [Concomitant]
     Dosage: 17 MG, UNK
     Route: 042
     Dates: start: 20030701, end: 20030701
  21. TRASYLOL [Suspect]
     Dosage: 50ML/HR
     Route: 042
     Dates: start: 20030701, end: 20030701

REACTIONS (13)
  - ANXIETY [None]
  - MULTI-ORGAN FAILURE [None]
  - RENAL INJURY [None]
  - RENAL IMPAIRMENT [None]
  - STRESS [None]
  - EMOTIONAL DISTRESS [None]
  - FEAR [None]
  - DEATH [None]
  - PAIN [None]
  - UNEVALUABLE EVENT [None]
  - INJURY [None]
  - RENAL FAILURE [None]
  - ANHEDONIA [None]
